FAERS Safety Report 5673962-2 (Version None)
Quarter: 2008Q1

REPORT INFORMATION
  Report Type: 
  Country: None (occurrence: None)
  Receive Date: 20080317
  Receipt Date: 20080228
  Transmission Date: 20080703
  Serious: Yes (Death, Life-Threatening, Other)
  Sender: FDA-Public Use
  Company Number: 2008JP000144

PATIENT
  Age: 87 Year
  Sex: Male

DRUGS (8)
  1. FUNGUARD(MICAFUNGIN) INJECTION [Suspect]
     Indication: PNEUMONIA
     Dosage: 150 MG, UID/QD, IV DRIP
     Route: 041
     Dates: start: 20071229, end: 20080106
  2. TARGOCID [Suspect]
     Indication: PNEUMONIA
     Dosage: 400 MG, UID/QD, IV DRIP
     Route: 041
     Dates: start: 20071228, end: 20080107
  3. PACIL(PAZUFLOXACIN) INJECTION [Suspect]
     Indication: PNEUMONIA
     Dosage: 0.5 G, BID, IV NOS
     Route: 042
     Dates: start: 20071217, end: 20071225
  4. PACIL(PAZUFLOXACIN) INJECTION [Suspect]
     Indication: PNEUMONIA
     Dosage: 0.5 G, BID, IV NOS
     Route: 042
     Dates: start: 20071228, end: 20080107
  5. FLAGYL [Suspect]
     Indication: ENTERITIS
     Dosage: 500 MG, TID, ORAL
     Route: 048
     Dates: start: 20071229, end: 20080106
  6. PRODIF (FLUCONAZOLE) [Concomitant]
  7. LEVOFLOXACIN [Concomitant]
  8. MAXIPIME [Concomitant]

REACTIONS (21)
  - ATRIAL FIBRILLATION [None]
  - CONDITION AGGRAVATED [None]
  - DEHYDRATION [None]
  - DRUG HYPERSENSITIVITY [None]
  - ENTERITIS [None]
  - EOSINOPHIL COUNT INCREASED [None]
  - FATIGUE [None]
  - GENERAL PHYSICAL HEALTH DETERIORATION [None]
  - HYPERTHERMIA [None]
  - HYPOVOLAEMIA [None]
  - INTERSTITIAL LUNG DISEASE [None]
  - NO THERAPEUTIC RESPONSE [None]
  - ORAL INTAKE REDUCED [None]
  - PNEUMONIA [None]
  - PNEUMONIA ASPIRATION [None]
  - PSEUDOMONAS INFECTION [None]
  - RASH [None]
  - RESPIRATORY FAILURE [None]
  - SPUTUM CULTURE POSITIVE [None]
  - STAPHYLOCOCCAL INFECTION [None]
  - TUBERCULOSIS [None]
